FAERS Safety Report 11869578 (Version 1)
Quarter: 2015Q4

REPORT INFORMATION
  Report Type: Spontaneous
  Country: CA (occurrence: CA)
  Receive Date: 20151228
  Receipt Date: 20151228
  Transmission Date: 20160305
  Serious: Yes (Death, Hospitalization, Other)
  Sender: FDA-Public Use
  Company Number: CA-HOSPIRA-3114226

PATIENT
  Age: 66 Year
  Sex: Male
  Weight: 80 kg

DRUGS (44)
  1. SAW PALMETTO                       /00833501/ [Concomitant]
     Active Substance: SAW PALMETTO
     Indication: ROUTINE HEALTH MAINTENANCE
     Route: 048
  2. METHOTREXATE [Concomitant]
     Active Substance: METHOTREXATE
     Indication: PSORIASIS
     Route: 048
  3. BETAMETHASONE DIPROPIONATE. [Concomitant]
     Active Substance: BETAMETHASONE DIPROPIONATE
     Indication: PSORIASIS
     Route: 061
  4. VITAMIN B12 [Concomitant]
     Active Substance: CYANOCOBALAMIN
     Indication: ROUTINE HEALTH MAINTENANCE
     Route: 048
  5. ALEVE [Concomitant]
     Active Substance: NAPROXEN SODIUM
     Indication: PSORIASIS
     Route: 048
  6. GRAMICIDIN W/NEOMYCIN SULFATE/POLYMYXIN B SUL [Concomitant]
     Indication: SKIN ULCER
     Route: 061
  7. METHOTREXATE [Concomitant]
     Active Substance: METHOTREXATE
     Indication: PSORIASIS
     Route: 048
  8. ALEVE [Concomitant]
     Active Substance: NAPROXEN SODIUM
     Indication: SKIN FISSURES
     Route: 048
  9. NICOTINAMIDE W/RIBOFLAVIN/THIAMINE [Concomitant]
     Indication: ROUTINE HEALTH MAINTENANCE
     Route: 048
  10. ELOCOM [Concomitant]
     Active Substance: MOMETASONE FUROATE
     Indication: PSORIASIS
     Route: 061
  11. FOLIC ACID. [Concomitant]
     Active Substance: FOLIC ACID
     Indication: VITAMIN SUPPLEMENTATION
     Route: 048
  12. METHOTREXATE [Concomitant]
     Active Substance: METHOTREXATE
     Indication: PSORIASIS
     Route: 048
  13. VITAMIN C [Concomitant]
     Active Substance: ASCORBIC ACID
     Indication: ROUTINE HEALTH MAINTENANCE
     Route: 048
  14. CYCLOCORT [Concomitant]
     Active Substance: AMCINONIDE
     Indication: PSORIASIS
     Route: 061
  15. ALGINIC ACID W/ALUMINIUM HYDROXIDE/SODIUM BIC [Concomitant]
     Indication: DYSPEPSIA
     Route: 048
  16. VITAMIN D                          /00107901/ [Concomitant]
     Active Substance: ERGOCALCIFEROL
     Indication: ROUTINE HEALTH MAINTENANCE
     Route: 048
  17. STELARA [Suspect]
     Active Substance: USTEKINUMAB
     Indication: PSORIASIS
     Route: 058
  18. CELEBREX [Concomitant]
     Active Substance: CELECOXIB
     Indication: ARTHRITIS
     Route: 048
  19. VANCOMYCIN HYDROCHLORIDE. [Suspect]
     Active Substance: VANCOMYCIN HYDROCHLORIDE
     Indication: CELLULITIS
     Route: 065
  20. METHOTREXATE [Concomitant]
     Active Substance: METHOTREXATE
     Indication: PSORIASIS
     Route: 048
  21. HUMIRA [Suspect]
     Active Substance: ADALIMUMAB
     Indication: PSORIASIS
     Route: 058
  22. HYDROCORTISONE. [Concomitant]
     Active Substance: HYDROCORTISONE
     Indication: PSORIASIS
     Route: 061
  23. METHOTREXATE [Concomitant]
     Active Substance: METHOTREXATE
     Indication: PSORIASIS
     Route: 048
  24. METHOTREXATE [Concomitant]
     Active Substance: METHOTREXATE
     Indication: PSORIASIS
     Route: 048
  25. WHEAT GERM OIL [Concomitant]
     Active Substance: WHEAT GERM OIL
     Indication: ROUTINE HEALTH MAINTENANCE
     Route: 048
  26. HUMIRA [Suspect]
     Active Substance: ADALIMUMAB
     Indication: PSORIASIS
     Route: 058
  27. HUMIRA [Suspect]
     Active Substance: ADALIMUMAB
     Indication: PSORIASIS
     Route: 058
  28. VITAMIN D                          /00107901/ [Concomitant]
     Active Substance: ERGOCALCIFEROL
     Indication: ROUTINE HEALTH MAINTENANCE
     Route: 048
  29. ALEVE [Concomitant]
     Active Substance: NAPROXEN SODIUM
     Indication: PAIN IN EXTREMITY
     Route: 048
  30. LIPITOR [Concomitant]
     Active Substance: ATORVASTATIN CALCIUM
     Indication: HYPERLIPIDAEMIA
     Route: 048
  31. LIQUID NITROGEN [Concomitant]
     Active Substance: NITROGEN
     Indication: ACTINIC KERATOSIS
     Route: 061
  32. METHOTREXATE [Concomitant]
     Active Substance: METHOTREXATE
     Indication: PSORIASIS
     Route: 048
  33. METHOTREXATE [Concomitant]
     Active Substance: METHOTREXATE
     Indication: PSORIASIS
     Route: 048
  34. METHOTREXATE [Concomitant]
     Active Substance: METHOTREXATE
     Indication: PSORIASIS
     Route: 048
  35. METHOTREXATE [Concomitant]
     Active Substance: METHOTREXATE
     Indication: PSORIASIS
     Route: 048
  36. BETADERM                           /00008501/ [Concomitant]
     Indication: PSORIASIS
     Route: 061
  37. CALCIUM W/MAGNESIUM/VITAMIN D [Concomitant]
     Indication: ROUTINE HEALTH MAINTENANCE
     Route: 048
  38. METHOTREXATE [Concomitant]
     Active Substance: METHOTREXATE
     Indication: PSORIASIS
     Route: 048
  39. METHOTREXATE [Concomitant]
     Active Substance: METHOTREXATE
     Indication: PSORIASIS
     Route: 048
  40. STELARA [Suspect]
     Active Substance: USTEKINUMAB
     Indication: PSORIASIS
     Route: 058
  41. ACETYLSALICYLIC ACID [Concomitant]
     Active Substance: ASPIRIN
     Indication: ROUTINE HEALTH MAINTENANCE
     Route: 048
  42. ALEVE [Concomitant]
     Active Substance: NAPROXEN SODIUM
     Indication: SKIN HAEMORRHAGE
     Route: 048
  43. ENBREL [Concomitant]
     Active Substance: ETANERCEPT
     Indication: PSORIASIS
     Route: 058
  44. RANITIDINE [Concomitant]
     Active Substance: RANITIDINE\RANITIDINE HYDROCHLORIDE
     Indication: DYSPEPSIA
     Route: 048

REACTIONS (36)
  - Blood creatine phosphokinase increased [Fatal]
  - Respiratory failure [Fatal]
  - Tachycardia [Fatal]
  - Drug ineffective [Fatal]
  - Arteriosclerosis [Fatal]
  - C-reactive protein increased [Fatal]
  - ECG signs of myocardial ischaemia [Fatal]
  - Feeling hot [Fatal]
  - Pulse absent [Fatal]
  - Cellulitis staphylococcal [Fatal]
  - Delirium [Fatal]
  - Localised infection [Fatal]
  - Multi-organ failure [Fatal]
  - Arterial stenosis [Fatal]
  - Ischaemic hepatitis [Fatal]
  - Pain [Fatal]
  - Peripheral ischaemia [Fatal]
  - Sinus tachycardia [Fatal]
  - Sepsis [Fatal]
  - Cardiac murmur [Fatal]
  - Constipation [Fatal]
  - Extremity necrosis [Fatal]
  - Gangrene [Fatal]
  - Intermittent claudication [Fatal]
  - Wound [Fatal]
  - Aortic aneurysm [Fatal]
  - Proteinuria [Fatal]
  - Red blood cell sedimentation rate increased [Fatal]
  - Renal impairment [Fatal]
  - Sensory loss [Fatal]
  - Skin necrosis [Fatal]
  - Urine analysis abnormal [Fatal]
  - Blood potassium increased [Fatal]
  - Dysstasia [Fatal]
  - Erythema [Fatal]
  - Nausea [Fatal]
